FAERS Safety Report 6093652-4 (Version None)
Quarter: 2009Q1

REPORT INFORMATION
  Report Type: 
  Country: None (occurrence: None)
  Receive Date: 20090226
  Receipt Date: 20090217
  Transmission Date: 20090719
  Serious: Yes (Death, Hospitalization)
  Sender: FDA-Public Use
  Company Number: KR-PFIZER INC-2009171566

PATIENT

DRUGS (8)
  1. SUNITINIB MALATE [Suspect]
     Indication: RENAL CELL CARCINOMA
     Dosage: 37.5 MG, 1X/DAY
     Route: 048
     Dates: start: 20080402, end: 20080804
  2. GOSERELIN [Concomitant]
     Dosage: 3.6 MG, 1X/DAY
     Dates: start: 20080322, end: 20080825
  3. BICALUTAMIDE [Concomitant]
     Dosage: 50 MG, 1X/DAY
     Dates: start: 20080322, end: 20080419
  4. MEGESTROL [Concomitant]
     Dosage: 800 MG, 1X/DAY
     Dates: start: 20080402, end: 20080630
  5. LEVOSULPIRIDE [Concomitant]
     Dosage: 50 MG, 1X/DAY
     Dates: start: 20080402, end: 20080825
  6. PRAVASTATIN [Concomitant]
     Dosage: 40 MG, 1X/DAY
     Dates: start: 20080402, end: 20080828
  7. SOLIFENACIN [Concomitant]
     Dosage: 5 MG, 1X/DAY
     Dates: start: 20080430, end: 20080509
  8. TAMSULOSIN HYDROCHLORIDE [Concomitant]
     Dosage: 0.2 MG, 1X/DAY
     Dates: start: 20080430, end: 20080509

REACTIONS (3)
  - DIABETES MELLITUS [None]
  - HYPERGLYCAEMIC HYPEROSMOLAR NONKETOTIC SYNDROME [None]
  - PULMONARY EMBOLISM [None]
